FAERS Safety Report 9941132 (Version 1)
Quarter: 2014Q1

REPORT INFORMATION
  Report Type: Report from Study
  Country: US (occurrence: US)
  Receive Date: 20140303
  Receipt Date: 20140303
  Transmission Date: 20141002
  Serious: No
  Sender: FDA-Public Use
  Company Number: US-ABBVIE-13P-163-1043195-00

PATIENT
  Age: 41 Year
  Sex: Female

DRUGS (3)
  1. HUMIRA [Suspect]
     Indication: PSORIASIS
     Dates: start: 201210
  2. LEXAPRO [Concomitant]
     Indication: ANXIETY
     Dosage: 10 MG DAILY
  3. LEXAPRO [Concomitant]
     Indication: DEPRESSION

REACTIONS (2)
  - Fatigue [Recovering/Resolving]
  - Sinus congestion [Recovering/Resolving]
